FAERS Safety Report 9649116 (Version 1)
Quarter: 2013Q4

REPORT INFORMATION
  Report Type: Spontaneous
  Country: US (occurrence: US)
  Receive Date: 20131028
  Receipt Date: 20131028
  Transmission Date: 20140711
  Serious: No
  Sender: FDA-Public Use
  Company Number: US-SA-2013SA097156

PATIENT
  Age: 71 Year
  Sex: Male

DRUGS (3)
  1. LUMIZYME [Suspect]
     Indication: GLYCOGEN STORAGE DISEASE TYPE II
     Route: 042
     Dates: end: 20131003
  2. ZYRTEC [Concomitant]
     Indication: PREMEDICATION
  3. DIPHENHYDRAMINE [Concomitant]
     Indication: PREMEDICATION

REACTIONS (4)
  - Blood immunoglobulin G increased [Not Recovered/Not Resolved]
  - Asthenia [Not Recovered/Not Resolved]
  - Wheelchair user [Not Recovered/Not Resolved]
  - Rash [Not Recovered/Not Resolved]
